FAERS Safety Report 5951487-4 (Version None)
Quarter: 2008Q4

REPORT INFORMATION
  Report Type: 
  Country: None (occurrence: None)
  Receive Date: 20081113
  Receipt Date: 20081030
  Transmission Date: 20090506
  Serious: Yes (Life-Threatening, Hospitalization, Other)
  Sender: FDA-Public Use
  Company Number: HR-AVENTIS-200819714GDDC

PATIENT
  Age: 71 Year
  Sex: Male

DRUGS (12)
  1. INSULIN GLARGINE [Suspect]
     Indication: DIABETES MELLITUS
     Route: 058
     Dates: start: 20040517
  2. OPTIPEN (INSULIN PUMP) [Suspect]
     Indication: DIABETES MELLITUS
  3. CODE UNBROKEN [Suspect]
     Route: 048
     Dates: start: 20040517
  4. WARFARIN SODIUM [Concomitant]
     Indication: ATRIAL FIBRILLATION
     Dates: start: 19910101
  5. FUROSEMIDE [Concomitant]
     Dates: start: 20081001
  6. POTASSIUM CHLORIDE [Concomitant]
     Dates: start: 20081001
  7. GLICLAZIDE [Concomitant]
     Indication: DIABETES MELLITUS
     Dates: start: 20060901
  8. ACARBOSE [Concomitant]
     Indication: DIABETES MELLITUS
     Dates: start: 20070101
  9. HYDROCHLOROTHIAZIDE [Concomitant]
     Indication: HYPERTENSION
     Dates: start: 20051001
  10. LEVOTHYROXINE SODIUM [Concomitant]
     Indication: HYPOTHYROIDISM
     Dates: start: 20071001
  11. CALCITRIOL [Concomitant]
     Dates: start: 20080901
  12. CALCIUM CARBONATE [Concomitant]
     Dates: start: 20080901

REACTIONS (1)
  - THYROID CANCER [None]
